FAERS Safety Report 4701564-0 (Version None)
Quarter: 2005Q2

REPORT INFORMATION
  Report Type: 
  Country: None (occurrence: None)
  Receive Date: 20050628
  Receipt Date: 20050624
  Transmission Date: 20051028
  Serious: Yes (Hospitalization)
  Sender: FDA-Public Use
  Company Number: 2005PK01105

PATIENT
  Age: 84 Year
  Sex: Female

DRUGS (9)
  1. ATACAND [Suspect]
     Route: 048
     Dates: start: 20040901, end: 20050518
  2. ATACAND [Suspect]
     Route: 048
     Dates: start: 20050530
  3. NEXIUM [Interacting]
     Route: 048
  4. ESIDRIX [Suspect]
     Route: 048
     Dates: start: 20021001, end: 20050518
  5. ESIDRIX [Suspect]
     Route: 048
     Dates: start: 20050530
  6. CIPRAMIL [Interacting]
     Route: 048
     Dates: start: 20050515, end: 20050518
  7. TEBONIN [Concomitant]
     Route: 048
     Dates: start: 20021001
  8. ASPIRIN [Concomitant]
     Route: 048
     Dates: start: 20021001
  9. ZOCOR [Concomitant]
     Route: 048
     Dates: start: 20021101

REACTIONS (2)
  - DRUG INTERACTION [None]
  - HYPONATRAEMIA [None]
